FAERS Safety Report 7097504-2 (Version None)
Quarter: 2010Q4

REPORT INFORMATION
  Report Type: 
  Country: None (occurrence: None)
  Receive Date: 20101111
  Receipt Date: 20101029
  Transmission Date: 20110411
  Serious: Yes (Other)
  Sender: FDA-Public Use
  Company Number: PHHY2010BR21840

PATIENT
  Age: 50 Year
  Sex: Female
  Weight: 57 kg

DRUGS (5)
  1. ACLASTA [Suspect]
     Indication: OSTEOPOROSIS
     Dosage: 5 MG
     Route: 042
     Dates: start: 20090101
  2. ACLASTA [Suspect]
     Dosage: 5MG/100ML
     Route: 042
     Dates: start: 20101025
  3. SERTRALINE HYDROCHLORIDE [Concomitant]
     Indication: DEPRESSION
     Dosage: 1 DF DAILY
     Route: 048
     Dates: start: 20080801
  4. CARBAMAZEPINE [Concomitant]
     Indication: DEPRESSION
     Dosage: 200 MG, TID
     Route: 048
     Dates: start: 20080801
  5. CONJUGATED ESTROGENS [Concomitant]
     Indication: HORMONE REPLACEMENT THERAPY
     Dosage: 1 DF, DAILY
     Route: 048
     Dates: start: 19970101

REACTIONS (6)
  - ANXIETY [None]
  - BEDRIDDEN [None]
  - BREAST ENLARGEMENT [None]
  - DRY MOUTH [None]
  - FLUID RETENTION [None]
  - MICTURITION FREQUENCY DECREASED [None]
